FAERS Safety Report 7473328-9 (Version None)
Quarter: 2011Q2

REPORT INFORMATION
  Report Type: 
  Country: None (occurrence: None)
  Receive Date: 20110511
  Receipt Date: 20110502
  Transmission Date: 20111010
  Serious: Yes (Hospitalization, Other)
  Sender: FDA-Public Use
  Company Number: BR-ABBOTT-10P-020-0691495-00

PATIENT
  Sex: Female
  Weight: 71 kg

DRUGS (4)
  1. HUMIRA [Suspect]
     Indication: CROHN'S DISEASE
     Dosage: INDUCTION DOSE: 160MG/80MG/ 160 MG LOADING DOSE
     Route: 058
     Dates: start: 20100801, end: 20100801
  2. AMLODIPINE W/BENAZEPRIL [Concomitant]
     Indication: BLOOD PRESSURE MANAGEMENT
     Dosage: 0.5MG/10MG EVERY 24 HOURS
     Route: 048
     Dates: start: 20030101
  3. HUMIRA [Suspect]
     Route: 058
  4. HUMIRA [Suspect]
     Dosage: 80 MG LOADING DOSE
     Route: 058

REACTIONS (5)
  - DYSSTASIA [None]
  - ARTHRALGIA [None]
  - PAIN IN EXTREMITY [None]
  - SMALL INTESTINAL STENOSIS [None]
  - BURNING SENSATION [None]
